FAERS Safety Report 14327043 (Version 2)
Quarter: 2018Q1

REPORT INFORMATION
  Report Type: Report from Study
  Country: US (occurrence: US)
  Receive Date: 20171227
  Receipt Date: 20180228
  Transmission Date: 20180509
  Serious: Yes (Other)
  Sender: FDA-Public Use
  Company Number: US-GILEAD-2017-0312067

PATIENT
  Age: 67 Year
  Sex: Female

DRUGS (11)
  1. REMODULIN [Concomitant]
     Active Substance: TREPROSTINIL
  2. SPIRONOLACTON [Concomitant]
     Active Substance: SPIRONOLACTONE
  3. VIRTUSSIN AC [Concomitant]
     Active Substance: CODEINE PHOSPHATE\GUAIFENESIN
  4. FERROUS SULFATE. [Concomitant]
     Active Substance: FERROUS SULFATE
  5. AMBRISENTAN [Suspect]
     Active Substance: AMBRISENTAN
     Indication: PULMONARY HYPERTENSION
     Dosage: 10 MG, QD
     Route: 065
     Dates: start: 20141020
  6. ELIQUIS [Concomitant]
     Active Substance: APIXABAN
  7. ADCIRCA [Concomitant]
     Active Substance: TADALAFIL
  8. DIGOXIN. [Concomitant]
     Active Substance: DIGOXIN
  9. POTASSIUM [Concomitant]
     Active Substance: POTASSIUM
  10. LASIX [Concomitant]
     Active Substance: FUROSEMIDE
  11. NEXIUM [Concomitant]
     Active Substance: ESOMEPRAZOLE MAGNESIUM

REACTIONS (2)
  - Arrhythmia [Not Recovered/Not Resolved]
  - Catheterisation cardiac [Recovered/Resolved]

NARRATIVE: CASE EVENT DATE: 201710
